FAERS Safety Report 5452999-2 (Version None)
Quarter: 2007Q3

REPORT INFORMATION
  Report Type: 
  Country: None (occurrence: None)
  Receive Date: 20070914
  Receipt Date: 20070905
  Transmission Date: 20080115
  Serious: Yes (Hospitalization)
  Sender: FDA-Public Use
  Company Number: US-SHR-US-2007-031202

PATIENT
  Age: 37 Year
  Sex: Female
  Weight: 67.12 kg

DRUGS (9)
  1. BETASERON [Suspect]
     Indication: RELAPSING-REMITTING MULTIPLE SCLEROSIS
     Dosage: 8 MIU, EVERY 2D
     Route: 058
     Dates: start: 20060701
  2. LANTUS [Concomitant]
     Dosage: 25 IU, 1X/DAY
     Dates: start: 19990101
  3. NOVOLOG [Concomitant]
     Dosage: 15-20 IU, 1X/DAY
     Dates: start: 19800101
  4. LYRICA [Concomitant]
     Dosage: 75 MG, 3X/DAY
     Dates: start: 20060101
  5. KLONOPIN [Concomitant]
     Dosage: .5 MG, 1-2, BED T.
     Dates: start: 20060101
  6. CLARITIN [Concomitant]
     Dosage: 10 MG, AS REQ'D
     Dates: start: 20030101
  7. ZOCOR [Concomitant]
     Dosage: 40 MG, BED T.
     Dates: start: 20060101
  8. ZOLOFT [Concomitant]
     Dosage: 100 MG, 1X/DAY
     Dates: start: 20060101
  9. PHENERGAN HCL [Concomitant]
     Dosage: 25 MG, AS REQ'D
     Dates: start: 20030101

REACTIONS (3)
  - BACK PAIN [None]
  - DYSPHAGIA [None]
  - HYPOAESTHESIA [None]
